FAERS Safety Report 15817745 (Version 4)
Quarter: 2019Q1

REPORT INFORMATION
  Report Type: Spontaneous
  Country: US (occurrence: US)
  Receive Date: 20190113
  Receipt Date: 20190322
  Transmission Date: 20190417
  Serious: No
  Sender: FDA-Public Use
  Company Number: US-JNJFOC-20181235583

PATIENT
  Sex: Female
  Weight: 98.43 kg

DRUGS (1)
  1. INVEGA SUSTENNA [Suspect]
     Active Substance: PALIPERIDONE PALMITATE
     Indication: SCHIZOPHRENIA
     Route: 030
     Dates: start: 201808

REACTIONS (5)
  - Weight increased [Unknown]
  - Peripheral swelling [Not Recovered/Not Resolved]
  - Delusion [Not Recovered/Not Resolved]
  - Thinking abnormal [Not Recovered/Not Resolved]
  - Paranoia [Not Recovered/Not Resolved]

NARRATIVE: CASE EVENT DATE: 2018
